FAERS Safety Report 7275669-7 (Version None)
Quarter: 2011Q1

REPORT INFORMATION
  Report Type: 
  Country: None (occurrence: None)
  Receive Date: 20110204
  Receipt Date: 20110126
  Transmission Date: 20110831
  Serious: Yes (Hospitalization)
  Sender: FDA-Public Use
  Company Number: US-JNJFOC-20110107941

PATIENT
  Sex: Male
  Weight: 72.12 kg

DRUGS (7)
  1. CORTICOSTEROIDS [Concomitant]
     Indication: PREMEDICATION
  2. INFLIXIMAB, RECOMBINANT [Suspect]
     Indication: CROHN'S DISEASE
     Dosage: 4 INFUSIONS PRIOR TO THE REGISTRY
     Route: 042
  3. ANTIHISTAMINES [Concomitant]
     Indication: PREMEDICATION
  4. ACETAMINOPHEN [Concomitant]
     Indication: PREMEDICATION
  5. INFLIXIMAB, RECOMBINANT [Suspect]
     Route: 042
  6. INFLIXIMAB, RECOMBINANT [Suspect]
     Route: 042
  7. INFLIXIMAB, RECOMBINANT [Suspect]
     Dosage: 45TH INFUSION IN THE REGISTRY
     Route: 042

REACTIONS (3)
  - RENAL FAILURE [None]
  - HYPOMAGNESAEMIA [None]
  - HYPOKALAEMIA [None]
